FAERS Safety Report 7526887-1 (Version None)
Quarter: 2011Q2

REPORT INFORMATION
  Report Type: 
  Country: None (occurrence: None)
  Receive Date: 20110606
  Receipt Date: 20110526
  Transmission Date: 20111010
  Serious: Yes (Hospitalization)
  Sender: FDA-Public Use
  Company Number: PHHO2011FR09250

PATIENT
  Sex: Male
  Weight: 65 kg

DRUGS (4)
  1. CYTARABINE [Concomitant]
     Indication: ACUTE LYMPHOCYTIC LEUKAEMIA
     Dosage: 11000 MG, DAILY
     Route: 042
     Dates: start: 20091020, end: 20091021
  2. IMATINIB MESYLATE [Suspect]
     Indication: ACUTE LYMPHOCYTIC LEUKAEMIA
     Dosage: 800 MG, DAILY
     Route: 048
     Dates: start: 20091019, end: 20091031
  3. METHOTREXATE [Concomitant]
     Indication: ACUTE LYMPHOCYTIC LEUKAEMIA
     Dosage: 1820 MG, DAILY
     Route: 042
     Dates: start: 20091019, end: 20091019
  4. IMATINIB MESYLATE [Suspect]
     Dosage: 800 MG, DAILY
     Route: 048
     Dates: start: 20091116

REACTIONS (1)
  - FEBRILE BONE MARROW APLASIA [None]
